FAERS Safety Report 15337855 (Version 2)
Quarter: 2018Q3

REPORT INFORMATION
  Report Type: Spontaneous
  Country: MX (occurrence: MX)
  Receive Date: 20180831
  Receipt Date: 20180924
  Transmission Date: 20181010
  Serious: Yes (Other)
  Sender: FDA-Public Use
  Company Number: MX-ROCHE-2177499

PATIENT
  Age: 18 Year
  Sex: Female

DRUGS (2)
  1. MABTHERA [Suspect]
     Active Substance: RITUXIMAB
     Indication: SYSTEMIC LUPUS ERYTHEMATOSUS
     Route: 042
     Dates: start: 201706
  2. MABTHERA [Suspect]
     Active Substance: RITUXIMAB
     Route: 042
     Dates: start: 20180815

REACTIONS (17)
  - Rash [Recovering/Resolving]
  - Prurigo [Recovered/Resolved]
  - Hypotension [Recovering/Resolving]
  - Wheezing [Recovering/Resolving]
  - Dyspnoea [Recovering/Resolving]
  - Urticaria [Recovering/Resolving]
  - Cyanosis [Recovering/Resolving]
  - Oxygen saturation decreased [Recovering/Resolving]
  - Intentional product use issue [Unknown]
  - Off label use [Unknown]
  - Laryngospasm [Recovering/Resolving]
  - Bronchospasm [Recovering/Resolving]
  - Face oedema [Recovering/Resolving]
  - Anaphylactic reaction [Recovered/Resolved]
  - Arthropod bite [Recovered/Resolved]
  - Tachycardia [Recovering/Resolving]
  - Hyperhidrosis [Recovering/Resolving]

NARRATIVE: CASE EVENT DATE: 20180815
